FAERS Safety Report 4647385-9 (Version None)
Quarter: 2005Q2

REPORT INFORMATION
  Report Type: 
  Country: None (occurrence: None)
  Receive Date: 20050426
  Receipt Date: 20050419
  Transmission Date: 20051028
  Serious: Yes (Life-Threatening)
  Sender: FDA-Public Use
  Company Number: 2005AP02335

PATIENT
  Age: 84 Year
  Sex: Female

DRUGS (2)
  1. NAROPIN [Suspect]
     Indication: ANAESTHESIA
     Dosage: 250 MG DAILY RNB
     Dates: start: 20050419, end: 20050419
  2. NAROPIN [Suspect]
     Indication: CAROTID ENDARTERECTOMY
     Dosage: 250 MG DAILY RNB
     Dates: start: 20050419, end: 20050419

REACTIONS (6)
  - CONFUSIONAL STATE [None]
  - HYPERTENSION [None]
  - LOSS OF CONSCIOUSNESS [None]
  - MYOCLONUS [None]
  - PROCEDURAL COMPLICATION [None]
  - TRANSIENT ISCHAEMIC ATTACK [None]
